FAERS Safety Report 5726637-5 (Version None)
Quarter: 2008Q2

REPORT INFORMATION
  Report Type: 
  Country: None (occurrence: None)
  Receive Date: 20080502
  Receipt Date: 20080425
  Transmission Date: 20081010
  Serious: Yes (Hospitalization)
  Sender: FDA-Public Use
  Company Number: FR-PFIZER INC-2008037076

PATIENT
  Sex: Female

DRUGS (8)
  1. PIROXICAM [Suspect]
     Indication: POLYMYOSITIS
     Route: 048
  2. CEFTRIAXONE [Suspect]
     Indication: LYME DISEASE
     Dosage: DAILY DOSE:2GRAM-FREQ:QD
     Route: 042
     Dates: start: 20080118, end: 20080208
  3. VALSARTAN [Suspect]
     Route: 048
  4. ACETYLSALICYLATE LYSINE [Suspect]
     Route: 048
  5. LERCANIDIPINE [Suspect]
     Route: 048
  6. COLECALCIFEROL [Suspect]
     Route: 048
  7. CALCIUM [Suspect]
     Route: 048
  8. PANTOPRAZOLE SODIUM [Concomitant]
     Route: 048

REACTIONS (2)
  - GRANULOMA [None]
  - TUBULOINTERSTITIAL NEPHRITIS [None]
